FAERS Safety Report 4326024-0 (Version None)
Quarter: 2004Q1

REPORT INFORMATION
  Report Type: 
  Country: None (occurrence: None)
  Receive Date: 20040329
  Receipt Date: 20031202
  Transmission Date: 20041129
  Serious: Yes (Hospitalization)
  Sender: FDA-Public Use
  Company Number: US-ROCHE-353059

PATIENT
  Age: 69 Year
  Sex: Male
  Weight: 99.8 kg

DRUGS (2)
  1. TICLID [Suspect]
     Route: 048
  2. TICLID [Suspect]
     Route: 048

REACTIONS (4)
  - AGEUSIA [None]
  - HYPOGEUSIA [None]
  - REFUSAL OF TREATMENT BY PATIENT [None]
  - TRANSIENT ISCHAEMIC ATTACK [None]
